FAERS Safety Report 9688643 (Version 2)
Quarter: 2013Q4

REPORT INFORMATION
  Report Type: Spontaneous
  Country: ES (occurrence: ES)
  Receive Date: 20131114
  Receipt Date: 20131202
  Transmission Date: 20140711
  Serious: Yes (Hospitalization, Other)
  Sender: FDA-Public Use
  Company Number: ES-TEVA-443227ISR

PATIENT
  Age: 64 Year
  Sex: Female

DRUGS (5)
  1. CARBOPLATIN [Suspect]
     Dosage: 6 CYCLES
     Dates: start: 20121113
  2. CARBOPLATIN [Suspect]
     Dosage: 650 MILLIGRAM DAILY; CYCLES 1-2
     Dates: start: 20130515
  3. CARBOPLATIN [Suspect]
     Dosage: 475 MILLIGRAM DAILY; CYCLES 3-4
  4. CARBOPLATIN [Suspect]
     Dosage: 400 MILLIGRAM DAILY; CYCLES 5-6
  5. TAXOL [Suspect]
     Dosage: 6 CYCLES
     Dates: start: 20121113, end: 20130228

REACTIONS (6)
  - Anaphylactic reaction [Recovered/Resolved]
  - Angina pectoris [Recovered/Resolved]
  - Respiratory disorder [Recovered/Resolved]
  - Swollen tongue [Recovered/Resolved]
  - Pruritus [Recovered/Resolved]
  - Neutropenia [Recovered/Resolved]
